FAERS Safety Report 4463185-7 (Version None)
Quarter: 2004Q3

REPORT INFORMATION
  Report Type: 
  Country: None (occurrence: None)
  Receive Date: 20040930
  Receipt Date: 20040823
  Transmission Date: 20050211
  Serious: Yes (Hospitalization)
  Sender: FDA-Public Use
  Company Number: DE-ROCHE-378260

PATIENT
  Age: 51 Year
  Sex: Male
  Weight: 69 kg

DRUGS (32)
  1. DACLIZUMAB [Suspect]
     Route: 042
     Dates: start: 20040819, end: 20040819
  2. DACLIZUMAB [Suspect]
     Route: 042
     Dates: start: 20040902, end: 20040902
  3. DACLIZUMAB [Suspect]
     Route: 042
     Dates: start: 20040914, end: 20040914
  4. MYCOPHENOLATE MOFETIL [Suspect]
     Route: 048
     Dates: start: 20040819
  5. MYCOPHENOLATE MOFETIL [Suspect]
     Dosage: 1000 MG + 500 MG.
     Route: 048
     Dates: start: 20040827, end: 20040827
  6. MYCOPHENOLATE MOFETIL [Suspect]
     Dosage: 500 MG + 2 X 750 MG
     Route: 048
     Dates: start: 20040828, end: 20040828
  7. MYCOPHENOLATE MOFETIL [Suspect]
     Route: 048
     Dates: start: 20040829
  8. MYCOPHENOLATE MOFETIL [Suspect]
     Route: 048
     Dates: start: 20040901, end: 20040901
  9. MYCOPHENOLATE MOFETIL [Suspect]
     Route: 048
     Dates: start: 20040902
  10. MYCOPHENOLATE MOFETIL [Suspect]
     Route: 048
     Dates: start: 20040909
  11. SIROLIMUS [Suspect]
     Route: 048
     Dates: start: 20040819, end: 20040821
  12. SIROLIMUS [Suspect]
     Route: 048
     Dates: start: 20040822
  13. SIROLIMUS [Suspect]
     Route: 048
     Dates: start: 20040828
  14. SIROLIMUS [Suspect]
     Route: 048
     Dates: start: 20040904
  15. SIROLIMUS [Suspect]
     Route: 048
     Dates: start: 20040909
  16. PREDNISOLONE [Suspect]
     Route: 042
     Dates: start: 20040822
  17. PREDNISOLONE [Suspect]
     Route: 042
     Dates: start: 20040819, end: 20040819
  18. PREDNISOLONE [Suspect]
     Route: 042
     Dates: start: 20040820
  19. PREDNISOLONE [Suspect]
     Route: 042
     Dates: start: 20040821
  20. PREDNISOLONE [Suspect]
     Route: 042
     Dates: start: 20040823
  21. PREDNISOLONE [Suspect]
     Route: 042
     Dates: start: 20040824
  22. PREDNISOLONE [Suspect]
     Route: 042
     Dates: start: 20040826
  23. PREDNISOLONE [Suspect]
     Route: 042
     Dates: start: 20040914
  24. PREDNISOLONE [Suspect]
     Route: 042
     Dates: start: 20040920
  25. ACETYLCYSTEINE [Concomitant]
     Dates: start: 20040819
  26. AMPHOTERICIN B [Concomitant]
     Dates: start: 20040819
  27. CEFUROXIM [Concomitant]
     Dates: start: 20040819
  28. DILTIAZEM [Concomitant]
     Dates: start: 20040819
  29. FUROSEMIDE [Concomitant]
     Dates: start: 20040822
  30. METOPROLOL [Concomitant]
     Dates: start: 20040822
  31. URAPIDIL [Concomitant]
     Dates: start: 20040821, end: 20040903
  32. VALGANCICLOVIR [Concomitant]
     Dosage: STOPPED ON 04 SEP 2004 AND RESTARTED ON 05 SEP 2004.
     Dates: start: 20040820

REACTIONS (4)
  - ANAEMIA [None]
  - ARTERIAL HAEMORRHAGE [None]
  - GRAFT COMPLICATION [None]
  - HYPOTENSION [None]
